FAERS Safety Report 11774050 (Version 1)
Quarter: 2015Q4

REPORT INFORMATION
  Report Type: Spontaneous
  Country: US (occurrence: None)
  Receive Date: 20151124
  Receipt Date: 20151124
  Transmission Date: 20160304
  Serious: Yes (Hospitalization, Other)
  Sender: FDA-Public Use
  Company Number: US-MDT-ADR-2015-02228

PATIENT
  Age: 7 Year
  Sex: Male

DRUGS (1)
  1. LIORESAL [Suspect]
     Active Substance: BACLOFEN
     Indication: MUSCLE SPASTICITY
     Dosage: 126 MCG/DAY

REACTIONS (6)
  - Staphylococcal infection [None]
  - Medical device site erythema [None]
  - Staphylococcus test positive [None]
  - Medical device site swelling [None]
  - Bacterial test positive [None]
  - Medical device site infection [None]
